FAERS Safety Report 8810646 (Version 1)
Quarter: 2012Q4

REPORT INFORMATION
  Report Type: Spontaneous
  Country: US (occurrence: None)
  Receive Date: 20120924
  Receipt Date: 20120924
  Transmission Date: 20130627
  Serious: Yes (Disabling)
  Sender: FDA-Public Use
  Company Number: None

PATIENT
  Age: 73 Year
  Sex: Female
  Weight: 53.98 kg

DRUGS (1)
  1. PLAVIX [Suspect]
     Indication: THROMBOSIS PROPHYLAXIS
     Dates: start: 201204

REACTIONS (9)
  - Blister [None]
  - Oral discomfort [None]
  - Glossodynia [None]
  - Oropharyngeal pain [None]
  - Skin ulcer [None]
  - Oral discomfort [None]
  - Skin exfoliation [None]
  - Sensory disturbance [None]
  - Rash [None]
